FAERS Safety Report 8235116-5 (Version None)
Quarter: 2012Q1

REPORT INFORMATION
  Report Type: 
  Country: None (occurrence: None)
  Receive Date: 20120326
  Receipt Date: 20120319
  Transmission Date: 20120608
  Serious: Yes (Hospitalization, Other)
  Sender: FDA-Public Use
  Company Number: US-MERCK-1110USA03837

PATIENT
  Age: 70 Year
  Sex: Female
  Weight: 48 kg

DRUGS (2)
  1. FOSAMAX [Suspect]
     Indication: OSTEOPOROSIS
     Route: 048
     Dates: start: 20030101, end: 20091001
  2. ALENDRONATE SODIUM [Suspect]
     Indication: OSTEOPOROSIS
     Route: 048
     Dates: start: 20090301, end: 20100801

REACTIONS (64)
  - APPENDIX DISORDER [None]
  - BREAST CANCER [None]
  - METASTASES TO BONE [None]
  - UPPER LIMB FRACTURE [None]
  - FATIGUE [None]
  - SPIGELIAN HERNIA [None]
  - RESTLESS LEGS SYNDROME [None]
  - VOMITING [None]
  - PEPTIC ULCER [None]
  - HYPERTENSION [None]
  - ARTERIOSCLEROSIS CORONARY ARTERY [None]
  - BILE DUCT STENOSIS [None]
  - GALLBLADDER DISORDER [None]
  - OVARIAN DISORDER [None]
  - GASTROINTESTINAL DISORDER [None]
  - FALL [None]
  - DIVERTICULITIS [None]
  - RETINAL DETACHMENT [None]
  - VENOUS INSUFFICIENCY [None]
  - ANGIOPATHY [None]
  - COLONIC POLYP [None]
  - FEMUR FRACTURE [None]
  - ATRIAL FLUTTER [None]
  - RIB FRACTURE [None]
  - PERIPHERAL VASCULAR DISORDER [None]
  - PAIN IN EXTREMITY [None]
  - NAUSEA [None]
  - HEADACHE [None]
  - BILIARY DILATATION [None]
  - ABDOMINAL ADHESIONS [None]
  - DERMAL CYST [None]
  - PRESBYOPIA [None]
  - ARTHRALGIA [None]
  - ARTHRITIS [None]
  - AMNESIA [None]
  - BLOOD CALCIUM DECREASED [None]
  - PATELLA FRACTURE [None]
  - ARRHYTHMIA SUPRAVENTRICULAR [None]
  - URINARY TRACT INFECTION [None]
  - BREAST DISORDER [None]
  - EYE DISORDER [None]
  - DIARRHOEA [None]
  - PERNICIOUS ANAEMIA [None]
  - VITAMIN D DEFICIENCY [None]
  - UTERINE DISORDER [None]
  - TRANSIENT ISCHAEMIC ATTACK [None]
  - ASTHENIA [None]
  - URINARY INCONTINENCE [None]
  - HAEMORRHOIDS [None]
  - CALCIUM DEFICIENCY [None]
  - ILEUS [None]
  - SMALL INTESTINAL OBSTRUCTION [None]
  - DEEP VEIN THROMBOSIS [None]
  - CEREBROVASCULAR ACCIDENT [None]
  - COLONIC OBSTRUCTION [None]
  - JOINT EFFUSION [None]
  - DEMENTIA [None]
  - OEDEMA PERIPHERAL [None]
  - MUSCULOSKELETAL CHEST PAIN [None]
  - BACK PAIN [None]
  - ASTIGMATISM [None]
  - DEVICE FAILURE [None]
  - OSTEOARTHRITIS [None]
  - HYPERMETROPIA [None]
